FAERS Safety Report 6387272-1 (Version None)
Quarter: 2009Q3

REPORT INFORMATION
  Report Type: 
  Country: None (occurrence: None)
  Receive Date: 20090928
  Receipt Date: 20090916
  Transmission Date: 20100115
  Serious: Yes (Hospitalization)
  Sender: FDA-Public Use
  Company Number: IDR-00297

PATIENT
  Sex: Female

DRUGS (1)
  1. INDERAL LA [Suspect]
     Indication: CARDIAC DISORDER
     Dosage: 120 MG, QD, PO
     Route: 048

REACTIONS (3)
  - FEELING ABNORMAL [None]
  - SUPRAVENTRICULAR EXTRASYSTOLES [None]
  - VENTRICULAR EXTRASYSTOLES [None]
